FAERS Safety Report 6429134-7 (Version None)
Quarter: 2009Q4

REPORT INFORMATION
  Report Type: 
  Country: None (occurrence: None)
  Receive Date: 20091105
  Receipt Date: 20091023
  Transmission Date: 20100525
  Serious: Yes (Hospitalization)
  Sender: FDA-Public Use
  Company Number: FR-ELI_LILLY_AND_COMPANY-FR200908004974

PATIENT
  Age: 71 Year
  Sex: Female
  Weight: 49 kg

DRUGS (7)
  1. FORTEO [Suspect]
     Indication: MULTIPLE FRACTURES
     Dosage: 20 UG, DAILY (1/D)
     Route: 058
     Dates: start: 20080201, end: 20090815
  2. KALEORID [Concomitant]
     Route: 048
  3. UVEDOSE [Concomitant]
     Route: 048
  4. MOPRAL [Concomitant]
     Route: 048
  5. RUBOZINC [Concomitant]
     Indication: SUPPLEMENTATION THERAPY
  6. SELENIUM [Concomitant]
     Indication: SUPPLEMENTATION THERAPY
  7. CACIT D3 [Concomitant]
     Indication: OSTEOPOROSIS
     Route: 048

REACTIONS (1)
  - ESCHERICHIA SEPSIS [None]
